FAERS Safety Report 13152473 (Version 3)
Quarter: 2018Q3

REPORT INFORMATION
  Report Type: Report from Study
  Country: US (occurrence: US)
  Receive Date: 20170125
  Receipt Date: 20180925
  Transmission Date: 20181010
  Serious: Yes (Hospitalization, Other)
  Sender: FDA-Public Use
  Company Number: US-AMGEN-USASL2017011037

PATIENT
  Sex: Female
  Weight: 54.42 kg

DRUGS (9)
  1. ENBREL [Suspect]
     Active Substance: ETANERCEPT
     Dosage: 50 MG, QWK
     Route: 065
  2. ENBREL [Suspect]
     Active Substance: ETANERCEPT
     Dosage: 50 MG, QWK
     Route: 065
     Dates: start: 201701
  3. VITAMIN D [Concomitant]
     Active Substance: CHOLECALCIFEROL
     Dosage: UNK
  4. MTX [Concomitant]
     Active Substance: METHOTREXATE SODIUM
     Dosage: UNK
     Route: 065
  5. ENBREL [Suspect]
     Active Substance: ETANERCEPT
     Dosage: UNK UNK, QWK
     Route: 065
     Dates: start: 201611, end: 2016
  6. PLAQUENIL [Concomitant]
     Active Substance: HYDROXYCHLOROQUINE SULFATE
     Indication: RHEUMATOID ARTHRITIS
     Dosage: UNK
     Route: 065
  7. OXYCODONE [Concomitant]
     Active Substance: OXYCODONE
     Dosage: UNK, AS NECESSARY
     Route: 065
  8. ENBREL [Suspect]
     Active Substance: ETANERCEPT
     Indication: RHEUMATOID ARTHRITIS
     Dosage: UNK UNK, QWK
     Route: 065
     Dates: end: 2015
  9. ANASTROZOLE. [Concomitant]
     Active Substance: ANASTROZOLE
     Indication: BREAST CANCER
     Dosage: UNK UNK, QD
     Route: 065

REACTIONS (11)
  - Muscle twitching [Unknown]
  - Fear of injection [Unknown]
  - Invasive ductal breast carcinoma [Unknown]
  - Wrong technique in product usage process [Unknown]
  - Malaise [Unknown]
  - Injection site pain [Unknown]
  - Drug dose omission [Unknown]
  - Decreased immune responsiveness [Unknown]
  - Rheumatoid arthritis [Recovering/Resolving]
  - Somnolence [Unknown]
  - Stress [Unknown]

NARRATIVE: CASE EVENT DATE: 2013
